FAERS Safety Report 19458573 (Version 11)
Quarter: 2022Q4

REPORT INFORMATION
  Report Type: Other
  Country: BR (occurrence: BR)
  Receive Date: 20210624
  Receipt Date: 20221007
  Transmission Date: 20230113
  Serious: Yes (Life-Threatening, Other)
  Sender: FDA-Public Use
  Company Number: BR-ROCHE-2851534

PATIENT
  Age: 49 Year
  Sex: Female
  Weight: 68 kg

DRUGS (22)
  1. XOLAIR [Suspect]
     Active Substance: OMALIZUMAB
     Indication: Chronic spontaneous urticaria
     Dosage: (STRENGTH: 150 MG AMPOULE))
     Route: 065
     Dates: start: 201708
  2. XOLAIR [Suspect]
     Active Substance: OMALIZUMAB
     Indication: Urticaria
     Route: 058
  3. XOLAIR [Suspect]
     Active Substance: OMALIZUMAB
     Route: 065
     Dates: start: 202012
  4. XOLAIR [Suspect]
     Active Substance: OMALIZUMAB
     Route: 058
     Dates: start: 20210202
  5. XOLAIR [Suspect]
     Active Substance: OMALIZUMAB
     Route: 065
     Dates: start: 20210407
  6. XOLAIR [Suspect]
     Active Substance: OMALIZUMAB
     Dosage: 2 DF, QMO (OF 150 MG)
     Route: 058
  7. XOLAIR [Suspect]
     Active Substance: OMALIZUMAB
     Route: 058
     Dates: start: 202102
  8. XOLAIR [Suspect]
     Active Substance: OMALIZUMAB
     Dosage: 2 DF, QMO (OF 150 MG)
     Route: 058
     Dates: start: 20210113
  9. XOLAIR [Suspect]
     Active Substance: OMALIZUMAB
     Dosage: 2 DF, QMO (OF 150 MG)
     Route: 058
     Dates: start: 20210210
  10. XOLAIR [Suspect]
     Active Substance: OMALIZUMAB
     Route: 058
     Dates: start: 20210406
  11. XOLAIR [Suspect]
     Active Substance: OMALIZUMAB
     Dosage: 2 DF, QMO (OF 150 MG)
     Route: 058
     Dates: start: 20210507
  12. XOLAIR [Suspect]
     Active Substance: OMALIZUMAB
     Route: 058
     Dates: start: 20210701
  13. XOLAIR [Suspect]
     Active Substance: OMALIZUMAB
     Route: 058
     Dates: start: 202107
  14. XOLAIR [Suspect]
     Active Substance: OMALIZUMAB
     Route: 058
     Dates: start: 20210728
  15. XOLAIR [Suspect]
     Active Substance: OMALIZUMAB
     Route: 058
     Dates: start: 20210825
  16. XOLAIR [Suspect]
     Active Substance: OMALIZUMAB
     Route: 058
     Dates: start: 20210922
  17. XOLAIR [Suspect]
     Active Substance: OMALIZUMAB
     Route: 058
  18. XOLAIR [Suspect]
     Active Substance: OMALIZUMAB
     Route: 065
  19. MONTELUKAST SODIUM [Concomitant]
     Active Substance: MONTELUKAST SODIUM
     Indication: Chronic spontaneous urticaria
     Route: 048
  20. MONTELUKAST SODIUM [Concomitant]
     Active Substance: MONTELUKAST SODIUM
     Indication: Hypersensitivity
  21. CROMOLYN SODIUM [Concomitant]
     Active Substance: CROMOLYN SODIUM
     Indication: Chronic spontaneous urticaria
     Route: 048
  22. CROMOLYN SODIUM [Concomitant]
     Active Substance: CROMOLYN SODIUM
     Indication: Hypersensitivity

REACTIONS (43)
  - Pruritus [Recovered/Resolved]
  - Pain [Unknown]
  - Product dose omission issue [Unknown]
  - Periorbital swelling [Unknown]
  - Eye disorder [Unknown]
  - Periorbital swelling [Unknown]
  - Mental impairment [Recovered/Resolved]
  - Dark circles under eyes [Unknown]
  - Urticaria [Unknown]
  - Disease recurrence [Unknown]
  - Skin irritation [Not Recovered/Not Resolved]
  - Dyspepsia [Recovered/Resolved]
  - Abnormal sensation in eye [Unknown]
  - Tinnitus [Recovered/Resolved]
  - Oedema [Recovered/Resolved]
  - Swelling of eyelid [Unknown]
  - Skin burning sensation [Recovered/Resolved]
  - Muscular weakness [Recovering/Resolving]
  - Grip strength decreased [Unknown]
  - Burning sensation [Recovering/Resolving]
  - Vision blurred [Recovering/Resolving]
  - Allergic reaction to excipient [Recovered/Resolved]
  - Swelling face [Recovering/Resolving]
  - Dizziness [Recovering/Resolving]
  - Pain in extremity [Recovering/Resolving]
  - Movement disorder [Recovering/Resolving]
  - Feeling of body temperature change [Not Recovered/Not Resolved]
  - Malaise [Recovered/Resolved]
  - Angioedema [Unknown]
  - Erythema [Recovered/Resolved]
  - General physical health deterioration [Unknown]
  - Demyelination [Recovered/Resolved]
  - Skin burning sensation [Not Recovered/Not Resolved]
  - Oedema [Unknown]
  - Anaphylactic reaction [Unknown]
  - Face oedema [Recovering/Resolving]
  - Eye oedema [Not Recovered/Not Resolved]
  - Burning sensation [Not Recovered/Not Resolved]
  - Viral infection [Unknown]
  - Pyrexia [Unknown]
  - Face oedema [Recovered/Resolved]
  - Hypersensitivity [Recovering/Resolving]
  - Inappropriate schedule of product administration [Unknown]

NARRATIVE: CASE EVENT DATE: 20190510
